FAERS Safety Report 4882448-4 (Version None)
Quarter: 2005Q4

REPORT INFORMATION
  Report Type: 
  Country: None (occurrence: None)
  Receive Date: 20051201
  Receipt Date: 20050929
  Transmission Date: 20060501
  Serious: No
  Sender: FDA-Public Use
  Company Number: 2005PV002653

PATIENT
  Age: 61 Year
  Sex: Male
  Weight: 110.6777 kg

DRUGS (7)
  1. BYETTA [Suspect]
     Indication: DIABETES MELLITUS NON-INSULIN-DEPENDENT
     Dosage: 10 MCG;BID;SC ; 5 MCG;BID;SC
     Route: 058
     Dates: start: 20050829, end: 20050928
  2. BYETTA [Suspect]
     Indication: DIABETES MELLITUS NON-INSULIN-DEPENDENT
     Dosage: 10 MCG;BID;SC ; 5 MCG;BID;SC
     Route: 058
     Dates: start: 20050929
  3. GLUCOPHAGE [Concomitant]
  4. GLIPIZIDE [Concomitant]
  5. AVANDIA [Concomitant]
  6. DIOVAN [Concomitant]
  7. VYTORIN [Concomitant]

REACTIONS (1)
  - WEIGHT DECREASED [None]
